FAERS Safety Report 20923386 (Version 1)
Quarter: 2022Q2

REPORT INFORMATION
  Report Type: Spontaneous
  Country: US (occurrence: US)
  Receive Date: 20220607
  Receipt Date: 20220607
  Transmission Date: 20220721
  Serious: Yes (Hospitalization, Other)
  Sender: FDA-Public Use
  Company Number: US-MLMSERVICE-20220518-3564915-1

PATIENT
  Age: 83 Year
  Sex: Male

DRUGS (3)
  1. DIVALPROEX SODIUM [Suspect]
     Active Substance: DIVALPROEX SODIUM
     Indication: Product used for unknown indication
     Dosage: 500 MILLIGRAM, 3 TIMES A DAY (INCREASED 2 WEEKS PRIOR)
     Route: 065
  2. DIVALPROEX SODIUM [Suspect]
     Active Substance: DIVALPROEX SODIUM
     Dosage: UNK
     Route: 065
  3. RISPERIDONE [Concomitant]
     Active Substance: RISPERIDONE
     Indication: Product used for unknown indication
     Dosage: 0.25 MILLIGRAM, TWO TIMES A DAY
     Route: 065

REACTIONS (8)
  - Subdural haemorrhage [Recovering/Resolving]
  - Toxicity to various agents [Recovering/Resolving]
  - Hyperammonaemia [Recovering/Resolving]
  - Fall [Recovering/Resolving]
  - Drug level increased [Recovering/Resolving]
  - Condition aggravated [Recovering/Resolving]
  - Encephalopathy [Recovering/Resolving]
  - Thrombocytopenia [Recovering/Resolving]
